FAERS Safety Report 21183596 (Version 5)
Quarter: 2022Q4

REPORT INFORMATION
  Report Type: Report from Study
  Country: US (occurrence: US)
  Receive Date: 20220808
  Receipt Date: 20221114
  Transmission Date: 20230113
  Serious: Yes (Hospitalization, Other)
  Sender: FDA-Public Use
  Company Number: US-EXELIXIS-CABO-22052035

PATIENT
  Age: 48 Year
  Sex: Female

DRUGS (7)
  1. CABOMETYX [Suspect]
     Active Substance: CABOZANTINIB S-MALATE
     Indication: Thyroid cancer
     Dosage: 40 MG, QD
     Route: 048
     Dates: start: 20220421, end: 20220724
  2. CABOMETYX [Suspect]
     Active Substance: CABOZANTINIB S-MALATE
     Indication: Metastases to lung
     Dosage: 40 MG, QD
     Route: 048
     Dates: start: 20220802
  3. CABOMETYX [Suspect]
     Active Substance: CABOZANTINIB S-MALATE
     Dosage: 20 MG, QD
     Route: 048
     Dates: start: 202209
  4. CAPRELSA [Suspect]
     Active Substance: VANDETANIB
     Indication: Thyroid cancer
     Dosage: UNK
  5. CAPRELSA [Suspect]
     Active Substance: VANDETANIB
     Indication: Metastases to lung
  6. ZOFRAN [Concomitant]
     Active Substance: ONDANSETRON HYDROCHLORIDE
  7. OXYCODONE [Concomitant]
     Active Substance: OXYCODONE

REACTIONS (38)
  - Pneumonia bacterial [Unknown]
  - Colitis [Unknown]
  - Pancreatitis [Unknown]
  - Faeces discoloured [Not Recovered/Not Resolved]
  - Insomnia [Not Recovered/Not Resolved]
  - Cognitive disorder [Unknown]
  - Hypophagia [Unknown]
  - Hypersomnia [Unknown]
  - Fall [Unknown]
  - Balance disorder [Unknown]
  - Hernia [Unknown]
  - Osteoarthritis [Unknown]
  - Chest pain [Unknown]
  - Peripheral swelling [Unknown]
  - Sciatica [Unknown]
  - Bone pain [Unknown]
  - Neuropathy peripheral [Unknown]
  - Diverticulitis [Unknown]
  - Skin lesion [Unknown]
  - Feeling cold [Unknown]
  - Sleep apnoea syndrome [Unknown]
  - Ligament sprain [Unknown]
  - Laboratory test abnormal [Unknown]
  - Muscular weakness [Unknown]
  - Blood iron decreased [Unknown]
  - Contusion [Unknown]
  - Urinary tract infection [Unknown]
  - Fatigue [Not Recovered/Not Resolved]
  - Gastric ulcer [Unknown]
  - Diarrhoea [Not Recovered/Not Resolved]
  - Constipation [Unknown]
  - Nausea [Unknown]
  - Rash macular [Unknown]
  - Dyspepsia [Unknown]
  - Gastrointestinal wall thickening [Unknown]
  - Weight decreased [Unknown]
  - Decreased appetite [Not Recovered/Not Resolved]
  - Metastases to lung [Unknown]

NARRATIVE: CASE EVENT DATE: 20220501
